FAERS Safety Report 7357392-3 (Version None)
Quarter: 2011Q1

REPORT INFORMATION
  Report Type: 
  Country: None (occurrence: None)
  Receive Date: 20110314
  Receipt Date: 20110314
  Transmission Date: 20110831
  Serious: Yes (Hospitalization)
  Sender: FDA-Public Use
  Company Number: None

PATIENT
  Sex: Male
  Weight: 7.6 kg

DRUGS (4)
  1. DOXORUBICIN HCL [Suspect]
     Dosage: 11.6 MG
  2. CYCLOPHOSPHAMIDE [Suspect]
     Dosage: 300 MG
  3. VINCRISTINE SULFATE [Suspect]
     Dosage: .57 MG
  4. MESNA [Suspect]
     Dosage: 183 MG

REACTIONS (11)
  - VOMITING [None]
  - BLOOD PRESSURE DECREASED [None]
  - PLEURAL EFFUSION [None]
  - HYPOPHAGIA [None]
  - DEHYDRATION [None]
  - LETHARGY [None]
  - RESPIRATORY DISTRESS [None]
  - HEPATIC FUNCTION ABNORMAL [None]
  - ASCITES [None]
  - HAEMOTHORAX [None]
  - TRANSAMINASES INCREASED [None]
